FAERS Safety Report 24636715 (Version 1)
Quarter: 2024Q4

REPORT INFORMATION
  Report Type: Spontaneous
  Country: US (occurrence: US)
  Receive Date: 20241119
  Receipt Date: 20241119
  Transmission Date: 20250115
  Serious: Yes (Other)
  Sender: BAYER HEALTHCARE PHARMACEUTICALS INC.
  Company Number: US-BAYER-2024A161618

PATIENT
  Age: 34 Year
  Sex: Female

DRUGS (1)
  1. MIRENA [Suspect]
     Active Substance: LEVONORGESTREL
     Dosage: 20?G/DAY
     Route: 015
     Dates: start: 20180712, end: 20241108

REACTIONS (3)
  - Cervix injury [Recovering/Resolving]
  - Genital haemorrhage [None]
  - Abdominal pain lower [None]

NARRATIVE: CASE EVENT DATE: 20220709
